FAERS Safety Report 9452895 (Version 1)
Quarter: 2013Q3

REPORT INFORMATION
  Report Type: Spontaneous
  Country: CN (occurrence: CN)
  Receive Date: 20130812
  Receipt Date: 20130812
  Transmission Date: 20140515
  Serious: Yes (Hospitalization)
  Sender: FDA-Public Use
  Company Number: CN-PFIZER INC-2013229268

PATIENT
  Age: 85 Year
  Sex: Male
  Weight: 68 kg

DRUGS (1)
  1. SUTENT [Suspect]
     Indication: RENAL CANCER
     Dosage: 2 CAPSULE, TWICE DAILY
     Route: 048
     Dates: start: 20120923, end: 20121001

REACTIONS (2)
  - Coagulation time prolonged [Recovering/Resolving]
  - Haemoptysis [Recovering/Resolving]
